FAERS Safety Report 13603673 (Version 2)
Quarter: 2019Q2

REPORT INFORMATION
  Report Type: Spontaneous
  Country: IT (occurrence: IT)
  Receive Date: 20170601
  Receipt Date: 20190528
  Transmission Date: 20190711
  Serious: Yes (Death, Hospitalization, Other)
  Sender: FDA-Public Use
  Company Number: IT-MYLANLABS-2017M1031892

PATIENT
  Age: 35 Year
  Sex: Female

DRUGS (3)
  1. VERAPAMIL [Interacting]
     Active Substance: VERAPAMIL HYDROCHLORIDE
     Indication: PRODUCT USED FOR UNKNOWN INDICATION
     Dosage: UNK
  2. ATENOLOL. [Suspect]
     Active Substance: ATENOLOL
     Indication: TACHYCARDIA
     Dosage: UNK
  3. CHLORPROMAZINE. [Concomitant]
     Active Substance: CHLORPROMAZINE

REACTIONS (7)
  - Pulmonary oedema [Fatal]
  - Drug interaction [Fatal]
  - Oxygen saturation decreased [Fatal]
  - Overdose [Fatal]
  - Toxicity to various agents [Fatal]
  - Cardiogenic shock [Fatal]
  - Loss of consciousness [Fatal]
